FAERS Safety Report 21761472 (Version 1)
Quarter: 2022Q4

REPORT INFORMATION
  Report Type: Spontaneous
  Country: CN (occurrence: CN)
  Receive Date: 20221221
  Receipt Date: 20221221
  Transmission Date: 20230113
  Serious: Yes (Other)
  Sender: FDA-Public Use
  Company Number: CN-009507513-2212CHN006269

PATIENT
  Age: 42 Year
  Sex: Male

DRUGS (1)
  1. JANUMET [Suspect]
     Active Substance: METFORMIN HYDROCHLORIDE\SITAGLIPTIN PHOSPHATE
     Indication: Type 2 diabetes mellitus
     Dosage: BID (AFTER LUNCH AND DINNER)
     Route: 048
     Dates: start: 20221211

REACTIONS (4)
  - Diabetes mellitus inadequate control [Unknown]
  - Diarrhoea [Recovering/Resolving]
  - Thirst [Unknown]
  - Dyspepsia [Unknown]

NARRATIVE: CASE EVENT DATE: 20221211
